FAERS Safety Report 20579719 (Version 2)
Quarter: 2022Q1

REPORT INFORMATION
  Report Type: Spontaneous
  Country: US (occurrence: US)
  Receive Date: 20220310
  Receipt Date: 20220324
  Transmission Date: 20220423
  Serious: Yes (Hospitalization)
  Sender: FDA-Public Use
  Company Number: US-TEVA-2022-US-2014080

PATIENT
  Age: 55 Year
  Sex: Female

DRUGS (5)
  1. DULOXETINE [Suspect]
     Active Substance: DULOXETINE
     Indication: Depression
     Route: 065
  2. AMITRIPTYLINE [Suspect]
     Active Substance: AMITRIPTYLINE
     Indication: Depression
     Route: 065
  3. METHYLENE BLUE [Suspect]
     Active Substance: METHYLENE BLUE
     Indication: Vasoplegia syndrome
     Route: 065
  4. DOPAMINE [Concomitant]
     Active Substance: DOPAMINE HYDROCHLORIDE
     Indication: Product used for unknown indication
     Route: 065
  5. EPINEPHRINE [Concomitant]
     Active Substance: EPINEPHRINE
     Indication: Product used for unknown indication
     Route: 065

REACTIONS (5)
  - Serotonin syndrome [Unknown]
  - Lactic acidosis [Unknown]
  - Multiple organ dysfunction syndrome [Unknown]
  - Vasospasm [Unknown]
  - Ischaemia [Unknown]
